FAERS Safety Report 4546477-2 (Version None)
Quarter: 2005Q1

REPORT INFORMATION
  Report Type: 
  Country: None (occurrence: None)
  Receive Date: 20050105
  Receipt Date: 20041221
  Transmission Date: 20050727
  Serious: Yes (Death, Hospitalization)
  Sender: FDA-Public Use
  Company Number: 2004AP000623

PATIENT
  Age: 37 Year
  Sex: Male

DRUGS (4)
  1. CHILDREN APAP ELIXIR (ACETAMINOPHEN) (ALPHARMA) [Suspect]
     Dosage: PO
     Route: 048
  2. INFANT'S APAP DROPS (ACETAMINOPHEN) (ALPHARMA) [Suspect]
     Dosage: PO
     Route: 048
  3. ETHANOL [Suspect]
     Dosage: PO
     Route: 048
  4. IRON [Suspect]
     Dosage: PO
     Route: 047

REACTIONS (25)
  - ABDOMINAL TENDERNESS [None]
  - ALCOHOLISM [None]
  - ANION GAP INCREASED [None]
  - BLOOD BICARBONATE DECREASED [None]
  - BLOOD CHLORIDE DECREASED [None]
  - BLOOD CREATINE INCREASED [None]
  - BLOOD GLUCOSE DECREASED [None]
  - BLOOD SODIUM DECREASED [None]
  - COAGULOPATHY [None]
  - GASTRITIS [None]
  - GASTROINTESTINAL NECROSIS [None]
  - GENERAL PHYSICAL HEALTH DETERIORATION [None]
  - HEPATIC NECROSIS [None]
  - HEPATIC STEATOSIS [None]
  - HYPOTENSION [None]
  - INTENTIONAL MISUSE [None]
  - INTERNATIONAL NORMALISED RATIO INCREASED [None]
  - LARGE INTESTINE PERFORATION [None]
  - LIPASE INCREASED [None]
  - NECROSIS ISCHAEMIC [None]
  - PERITONITIS [None]
  - RENAL FAILURE [None]
  - RESPIRATORY FAILURE [None]
  - TACHYCARDIA [None]
  - VOMITING [None]
